FAERS Safety Report 19996605 (Version 1)
Quarter: 2021Q4

REPORT INFORMATION
  Report Type: Spontaneous
  Country: DE (occurrence: DE)
  Receive Date: 20211026
  Receipt Date: 20211026
  Transmission Date: 20220303
  Serious: Yes (Hospitalization, Other)
  Sender: FDA-Public Use
  Company Number: DE-DESITIN-2021-01446

PATIENT

DRUGS (2)
  1. VALPROIC ACID [Suspect]
     Active Substance: VALPROIC ACID
     Indication: Product used for unknown indication
     Dosage: 3X1.5ML = 3X450MG VALPROATE
  2. VALPROATE [Suspect]
     Active Substance: VALPROIC ACID
     Indication: Product used for unknown indication
     Dosage: 90 MILLIGRAM, Q8H(3X90MG DAILY)

REACTIONS (2)
  - Accidental overdose [Recovered/Resolved]
  - Product substitution issue [Unknown]
